FAERS Safety Report 24320015 (Version 1)
Quarter: 2024Q3

REPORT INFORMATION
  Report Type: Report from Study
  Country: US (occurrence: US)
  Receive Date: 20240914
  Receipt Date: 20240914
  Transmission Date: 20241017
  Serious: Yes (Other)
  Sender: TAKEDA
  Company Number: US-TAKEDA-2024TUS080968

PATIENT
  Sex: Female

DRUGS (2)
  1. FRUQUINTINIB [Suspect]
     Active Substance: FRUQUINTINIB
     Indication: Hepatic cancer
     Dosage: 5 MILLIGRAM
     Route: 048
     Dates: start: 20240807
  2. FRUQUINTINIB [Suspect]
     Active Substance: FRUQUINTINIB
     Indication: Lung neoplasm malignant
     Dosage: 3 MILLIGRAM, QD
     Route: 048

REACTIONS (12)
  - Ascites [Unknown]
  - Contusion [Not Recovered/Not Resolved]
  - Alopecia [Unknown]
  - Nausea [Recovered/Resolved]
  - Pain [Recovering/Resolving]
  - Cough [Unknown]
  - Fatigue [Not Recovered/Not Resolved]
  - Vomiting [Recovered/Resolved]
  - Dysphonia [Not Recovered/Not Resolved]
  - Aphonia [Recovered/Resolved]
  - Bedridden [Unknown]
  - Off label use [Unknown]
